FAERS Safety Report 5309732-4 (Version None)
Quarter: 2007Q2

REPORT INFORMATION
  Report Type: 
  Country: None (occurrence: None)
  Receive Date: 20070427
  Receipt Date: 20070424
  Transmission Date: 20071010
  Serious: Yes (Hospitalization)
  Sender: FDA-Public Use
  Company Number: JP-AVENTIS-200711104JP

PATIENT
  Age: 5 Year
  Sex: Male

DRUGS (1)
  1. CLAFORAN [Suspect]
     Dates: start: 20070403

REACTIONS (1)
  - DISSEMINATED INTRAVASCULAR COAGULATION [None]
